FAERS Safety Report 5289643-3 (Version None)
Quarter: 2007Q2

REPORT INFORMATION
  Report Type: 
  Country: None (occurrence: None)
  Receive Date: 20070406
  Receipt Date: 20070326
  Transmission Date: 20071010
  Serious: Yes (Death)
  Sender: FDA-Public Use
  Company Number: JP-MERCK-0612USA01766

PATIENT
  Age: 81 Year
  Sex: Male

DRUGS (2)
  1. DECADRON [Suspect]
     Route: 048
  2. [THERAPY UNSPECIFIED] [Concomitant]
     Route: 065

REACTIONS (1)
  - PLATELET COUNT DECREASED [None]
